FAERS Safety Report 9485342 (Version 1)
Quarter: 2013Q3

REPORT INFORMATION
  Report Type: Spontaneous
  Country: AU (occurrence: AU)
  Receive Date: 20130828
  Receipt Date: 20130828
  Transmission Date: 20140515
  Serious: Yes (Death)
  Sender: FDA-Public Use
  Company Number: AU-ABBOTT-13P-008-1139283-00

PATIENT
  Age: 80 Year
  Sex: Male

DRUGS (1)
  1. LUCRIN DEPOT [Suspect]
     Indication: PRODUCT USED FOR UNKNOWN INDICATION
     Dates: start: 20120710, end: 20130728

REACTIONS (1)
  - Death [Fatal]
